FAERS Safety Report 9201832 (Version 1)
Quarter: 2013Q2

REPORT INFORMATION
  Report Type: Spontaneous
  Country: FR (occurrence: FR)
  Receive Date: 20130401
  Receipt Date: 20130401
  Transmission Date: 20140414
  Serious: Yes (Hospitalization)
  Sender: FDA-Public Use
  Company Number: FR-ROCHE-1208562

PATIENT
  Age: 30 Year
  Sex: Male

DRUGS (7)
  1. MABTHERA [Suspect]
     Indication: B-CELL LYMPHOMA
     Dosage: FIRST CYCLE
     Route: 065
     Dates: start: 20130104
  2. MABTHERA [Suspect]
     Dosage: SECOND CYCLE
     Route: 065
     Dates: start: 20130126
  3. MABTHERA [Suspect]
     Dosage: THIRD CYCLE
     Route: 065
     Dates: start: 20130223
  4. METHOTREXATE [Suspect]
     Indication: B-CELL LYMPHOMA
     Route: 042
     Dates: start: 20130225, end: 20130225
  5. IFOSFAMIDE [Concomitant]
  6. ETOPOSIDE [Concomitant]
  7. CYTARABINE [Concomitant]

REACTIONS (1)
  - Renal failure acute [Not Recovered/Not Resolved]
